FAERS Safety Report 6290521-1 (Version None)
Quarter: 2009Q3

REPORT INFORMATION
  Report Type: 
  Country: None (occurrence: None)
  Receive Date: 20090730
  Receipt Date: 20090529
  Transmission Date: 20100115
  Serious: No
  Sender: FDA-Public Use
  Company Number: US-BRISTOL-MYERS SQUIBB COMPANY-14640486

PATIENT
  Age: 67 Year
  Sex: Male
  Weight: 98 kg

DRUGS (15)
  1. COUMADIN [Suspect]
     Indication: ATRIAL FIBRILLATION
     Dosage: 1 DF = 5MG FOR 4 DAYS AND 2.5MG FOR 3 DAYS,STOPPED ON 1MAY09 AND RESTARTED ON25MAY09
     Dates: start: 20081101
  2. TRAMADOL [Suspect]
  3. PROVIGIL [Concomitant]
  4. LOVAZA [Concomitant]
  5. ASPIRIN [Concomitant]
  6. BISOPROLOL [Concomitant]
  7. SOMA [Concomitant]
  8. THYROID TAB [Concomitant]
  9. DEPO-TESTOSTERONE [Concomitant]
  10. ALLOPURINOL [Concomitant]
  11. SINGULAIR [Concomitant]
  12. METHOCARBAMOL [Concomitant]
  13. PRIMIDONE [Concomitant]
  14. COLCHICINE [Concomitant]
  15. LIMBREL [Concomitant]

REACTIONS (7)
  - COUGH [None]
  - DEHYDRATION [None]
  - DIARRHOEA [None]
  - ESSENTIAL TREMOR [None]
  - URETHRAL OBSTRUCTION [None]
  - VISION BLURRED [None]
  - WEIGHT DECREASED [None]
